FAERS Safety Report 12686191 (Version 4)
Quarter: 2016Q4

REPORT INFORMATION
  Report Type: Spontaneous
  Country: BR (occurrence: BR)
  Receive Date: 20160825
  Receipt Date: 20161215
  Transmission Date: 20170207
  Serious: Yes (Other)
  Sender: FDA-Public Use
  Company Number: PHHY2016BR115457

PATIENT
  Sex: Female
  Weight: 60 kg

DRUGS (5)
  1. EXELON PATCH [Suspect]
     Active Substance: RIVASTIGMINE
     Dosage: 13.3 MG (27 MG/ 15 CM2 PATCH), QHS
     Route: 062
  2. EXELON PATCH [Suspect]
     Active Substance: RIVASTIGMINE
     Dosage: 9.5 MG (PATCH 18 MG/10CM2 PATCH), QHS
     Route: 062
  3. EXELON PATCH [Suspect]
     Active Substance: RIVASTIGMINE
     Dosage: 9.5 MG (18 MG/10CM2 PATCH), QHS
     Route: 062
  4. EXELON PATCH [Suspect]
     Active Substance: RIVASTIGMINE
     Indication: MEMORY IMPAIRMENT
     Dosage: 4.6 MG (9 MG/ 5 CM2 PATCH), QHS
     Route: 062
     Dates: start: 201405
  5. EXELON PATCH [Suspect]
     Active Substance: RIVASTIGMINE
     Dosage: 9.5 MG (PATCH 18 MG/10CM2 PATCH), QHS
     Route: 062

REACTIONS (7)
  - Application site pruritus [Recovering/Resolving]
  - Application site hypersensitivity [Recovering/Resolving]
  - Abdominal pain upper [Recovered/Resolved]
  - Product use issue [Unknown]
  - Haematochezia [Recovering/Resolving]
  - Product adhesion issue [Unknown]
  - Drug ineffective [Recovering/Resolving]

NARRATIVE: CASE EVENT DATE: 2014
